FAERS Safety Report 13742553 (Version 2)
Quarter: 2018Q2

REPORT INFORMATION
  Report Type: Spontaneous
  Country: US (occurrence: US)
  Receive Date: 20170711
  Receipt Date: 20180627
  Transmission Date: 20180711
  Serious: Yes (Other)
  Sender: FDA-Public Use
  Company Number: US-SAOL THERAPEUTICS-2016SAO01251

PATIENT
  Age: 25 Year
  Sex: Male
  Weight: 61.22 kg

DRUGS (15)
  1. OXYBUTYNIN. [Concomitant]
     Active Substance: OXYBUTYNIN CHLORIDE
  2. CRANBERRY PROBIOTIC [Concomitant]
  3. VITAMIN C [Concomitant]
     Active Substance: ASCORBIC ACID
  4. COLACE [Concomitant]
     Active Substance: DOCUSATE SODIUM
  5. ^MAGIC BULLET SUP (BISAOCODYL)^ [Concomitant]
  6. LIORESAL [Suspect]
     Active Substance: BACLOFEN
     Indication: SPINAL CORD INJURY
  7. DANTROLINE [Concomitant]
     Active Substance: DANTROLENE
  8. LIORESAL [Suspect]
     Active Substance: BACLOFEN
     Indication: MUSCLE SPASTICITY
     Dosage: 227 ?G, \DAY
     Route: 037
     Dates: start: 20090910
  9. LIORESAL [Suspect]
     Active Substance: BACLOFEN
     Indication: SPINAL CORD INJURY
     Dosage: 445.8 ?G, \DAY
     Route: 037
     Dates: start: 20090910
  10. PROBIOTIC CAPS [Concomitant]
  11. FIBER CAPS [Concomitant]
     Active Substance: CALCIUM POLYCARBOPHIL
  12. DOXYCYCLINE. [Concomitant]
     Active Substance: DOXYCYCLINE
  13. LIORESAL [Suspect]
     Active Substance: BACLOFEN
     Indication: MUSCLE SPASTICITY
     Dosage: 246 ?G, \DAY
     Route: 037
  14. NEXIUM [Concomitant]
     Active Substance: ESOMEPRAZOLE MAGNESIUM
  15. BACLOFEN. [Concomitant]
     Active Substance: BACLOFEN
     Route: 048

REACTIONS (9)
  - Device dislocation [Recovered/Resolved]
  - Therapy non-responder [Recovering/Resolving]
  - Muscle spasticity [Recovering/Resolving]
  - Haemorrhoids [Unknown]
  - Abdominal pain [Unknown]
  - Back pain [Unknown]
  - Muscle spasms [Recovering/Resolving]
  - Intervertebral disc protrusion [Unknown]
  - Spinal osteoarthritis [Unknown]

NARRATIVE: CASE EVENT DATE: 2015
